FAERS Safety Report 9672429 (Version 2)
Quarter: 2013Q4

REPORT INFORMATION
  Report Type: Spontaneous
  Country: LB (occurrence: LB)
  Receive Date: 20131106
  Receipt Date: 20131125
  Transmission Date: 20140711
  Serious: Yes (Hospitalization, Other)
  Sender: FDA-Public Use
  Company Number: LB-MERCK-1311LBN000150

PATIENT
  Age: 49 Year
  Sex: Male

DRUGS (9)
  1. CANCIDAS [Suspect]
     Indication: FUNGAL INFECTION
     Dosage: UNK
     Route: 065
     Dates: start: 20131025, end: 2013
  2. CIPROFLOXACIN [Concomitant]
     Indication: FUNGAL INFECTION
     Dosage: UNK
     Route: 065
     Dates: start: 20131025
  3. COMBIVENT [Concomitant]
     Dosage: UNK
     Dates: start: 20131025
  4. ALBUMIN HUMAN [Concomitant]
     Dosage: UNK
     Dates: start: 20131025
  5. AMINO ACIDS (UNSPECIFIED) (+) CARBOHYDRATES (UNSPECIFIED) (+) ELECTROL [Concomitant]
     Dosage: UNK
     Dates: start: 20131025
  6. LASIX (FUROSEMIDE) [Concomitant]
     Dosage: UNK
     Dates: start: 20131020, end: 20131030
  7. FENTANYL [Concomitant]
     Dosage: UNK
     Dates: start: 20131020, end: 20131030
  8. VANCOMYCIN [Concomitant]
     Dosage: UNK
     Dates: start: 20131020
  9. FLAGYL [Concomitant]
     Dosage: UNK
     Dates: start: 20131020

REACTIONS (5)
  - Pancytopenia [Not Recovered/Not Resolved]
  - Transfusion [Unknown]
  - Blood albumin decreased [Unknown]
  - International normalised ratio increased [Unknown]
  - Hepatic function abnormal [Unknown]
